FAERS Safety Report 5316402-5 (Version None)
Quarter: 2007Q2

REPORT INFORMATION
  Report Type: 
  Country: None (occurrence: None)
  Receive Date: 20070504
  Receipt Date: 20070424
  Transmission Date: 20071010
  Serious: Yes (Hospitalization)
  Sender: FDA-Public Use
  Company Number: AUWYE557201MAY07

PATIENT
  Age: 22 Year
  Sex: Male

DRUGS (3)
  1. EFFEXOR XR [Suspect]
     Dosage: 225 MG
     Route: 048
  2. EFFEXOR XR [Suspect]
     Dosage: 450MG
     Route: 048
  3. EFFEXOR XR [Suspect]
     Dosage: UNKNOWN
     Route: 048

REACTIONS (4)
  - BLOOD URINE PRESENT [None]
  - HOSPITALISATION [None]
  - MALAISE [None]
  - PANCREATITIS [None]
